FAERS Safety Report 19384630 (Version 1)
Quarter: 2021Q2

REPORT INFORMATION
  Report Type: Spontaneous
  Country: IT (occurrence: IT)
  Receive Date: 20210608
  Receipt Date: 20210608
  Transmission Date: 20210717
  Serious: Yes (Death, Other)
  Sender: FDA-Public Use
  Company Number: IT-JAZZ-2021-IT-010301

PATIENT
  Age: 41 Year
  Sex: Female

DRUGS (1)
  1. VYXEOS [Suspect]
     Active Substance: CYTARABINE\DAUNORUBICIN
     Indication: ACUTE MYELOID LEUKAEMIA
     Dosage: FIRST INDUCTION COURSE

REACTIONS (2)
  - Disease progression [Fatal]
  - Skin necrosis [Unknown]

NARRATIVE: CASE EVENT DATE: 20201011
